FAERS Safety Report 9324086 (Version 1)
Quarter: 2013Q2

REPORT INFORMATION
  Report Type: Spontaneous
  Country: CA (occurrence: CA)
  Receive Date: 20130603
  Receipt Date: 20130603
  Transmission Date: 20140414
  Serious: Yes (Death, Hospitalization, Other)
  Sender: FDA-Public Use
  Company Number: CA-JNJFOC-20130515177

PATIENT
  Sex: Female
  Weight: 49.9 kg

DRUGS (16)
  1. TYLENOL [Suspect]
     Indication: PRODUCT USED FOR UNKNOWN INDICATION
     Route: 065
  2. TYLENOL WITH CODEINE [Suspect]
     Indication: PRODUCT USED FOR UNKNOWN INDICATION
     Route: 065
  3. HUMIRA [Suspect]
     Indication: PRODUCT USED FOR UNKNOWN INDICATION
     Route: 058
  4. CALCIUM [Concomitant]
     Route: 065
  5. ERGOCALCIFEROL [Concomitant]
     Route: 065
  6. EUROFER NOS [Concomitant]
     Route: 065
  7. FUROSEMIDE [Concomitant]
     Route: 065
  8. METHOTREXATE [Concomitant]
     Route: 065
  9. METOPROLOL [Concomitant]
     Route: 065
  10. MIRTAZAPINE [Concomitant]
     Route: 065
  11. OXEZE TURBOHALER [Concomitant]
     Route: 065
  12. RABEPRAZOLE [Concomitant]
     Route: 065
  13. TOLOXIN [Concomitant]
     Route: 065
  14. VITAMIN B12 [Concomitant]
     Route: 065
  15. WARFARIN [Concomitant]
     Route: 065
  16. FOLIC ACID [Concomitant]
     Route: 065

REACTIONS (14)
  - Arrhythmia [Fatal]
  - Hyperhidrosis [Fatal]
  - Aspartate aminotransferase increased [Fatal]
  - Atrial fibrillation [Fatal]
  - Blood creatinine increased [Fatal]
  - Cardiac failure congestive [Fatal]
  - Infection [Fatal]
  - Listeriosis [Fatal]
  - Liver injury [Fatal]
  - Multi-organ failure [Fatal]
  - Pneumonia [Fatal]
  - Pyrexia [Fatal]
  - Septic shock [Fatal]
  - Tachycardia [Fatal]
